FAERS Safety Report 9379833 (Version 1)
Quarter: 2013Q3

REPORT INFORMATION
  Report Type: Spontaneous
  Country: US (occurrence: US)
  Receive Date: 20130702
  Receipt Date: 20130702
  Transmission Date: 20140515
  Serious: Yes (Other)
  Sender: FDA-Public Use
  Company Number: US-ELI_LILLY_AND_COMPANY-US201306006557

PATIENT
  Age: 31 Year
  Sex: Male

DRUGS (3)
  1. QUINIDINE GLUCONATE [Suspect]
     Dosage: UNK, UNKNOWN
     Route: 050
  2. HEROIN [Concomitant]
     Dosage: UNK, UNKNOWN
     Route: 065
  3. METHADONE [Concomitant]
     Dosage: 100 MG, QD
     Route: 065

REACTIONS (4)
  - Nodal arrhythmia [Unknown]
  - Mitral valve incompetence [Unknown]
  - Pulmonary valve incompetence [Unknown]
  - Tricuspid valve incompetence [Unknown]
